FAERS Safety Report 7657644-3 (Version None)
Quarter: 2011Q3

REPORT INFORMATION
  Report Type: 
  Country: None (occurrence: None)
  Receive Date: 20110804
  Receipt Date: 20110726
  Transmission Date: 20111222
  Serious: Yes (Hospitalization)
  Sender: FDA-Public Use
  Company Number: US-ASTRAZENECA-2010SE46246

PATIENT
  Age: 728 Month
  Sex: Female

DRUGS (9)
  1. ADVAIR DISKUS 100/50 [Concomitant]
     Dosage: 100-50 DISKUS, INHALE ONE TIME BY MOUTH TWICE A DAY
     Route: 048
  2. LEVSIN-SL [Concomitant]
     Indication: PAIN
     Route: 048
  3. NEXIUM [Suspect]
     Route: 048
  4. ACYCLOVIR [Concomitant]
     Route: 048
  5. CRESTOR [Suspect]
     Route: 048
  6. CHLORDIAZEPOX-CLIDINIUM [Concomitant]
     Route: 048
  7. HYOSCYAMINE [Concomitant]
     Dosage: MUST TAKE BENADRYL 1/2 HOUR PRIOR
     Route: 048
  8. BISOPROLOL FUMARATE AND HYDROCHLOROTHIAZIDE [Concomitant]
     Dosage: 10/6.25 MILLIGRAM 1 TABLET BYMOUTH ONCE DAILY
     Route: 048
  9. PROAIR HFA [Concomitant]
     Dosage: 90 MICROGRAM INHALER INHALE 2 PUFFS BY MOUTH EVERY 4 HOURS AS NEEDED
     Route: 048

REACTIONS (2)
  - INTESTINAL OBSTRUCTION [None]
  - PAIN [None]
